FAERS Safety Report 5651641-5 (Version None)
Quarter: 2008Q1

REPORT INFORMATION
  Report Type: 
  Country: None (occurrence: None)
  Receive Date: 20080305
  Receipt Date: 20080118
  Transmission Date: 20080703
  Serious: Yes (Other)
  Sender: FDA-Public Use
  Company Number: US-ABBOTT-08P-163-0434199-00

PATIENT
  Sex: Female
  Weight: 77.18 kg

DRUGS (15)
  1. HUMIRA [Suspect]
     Indication: RHEUMATOID ARTHRITIS
     Route: 058
     Dates: start: 20070401
  2. HUMIRA [Suspect]
  3. PROVENTIL-HFA [Concomitant]
     Indication: ASTHMA
     Route: 055
  4. FOLIC ACID [Concomitant]
     Indication: VITAMIN SUPPLEMENTATION
     Route: 048
  5. METHOTREXATE [Concomitant]
     Indication: RHEUMATOID ARTHRITIS
     Route: 048
  6. DIAZEPAM [Concomitant]
     Indication: FEELING OF RELAXATION
     Route: 048
  7. ALENDRONATE SODIUM [Concomitant]
     Indication: OSTEOPOROSIS
     Route: 048
  8. ESOMEPRAZOLE MAGNESIUM [Concomitant]
     Indication: GASTROOESOPHAGEAL REFLUX DISEASE
     Route: 048
  9. OXYCODONE HCL [Concomitant]
     Indication: PAIN
     Route: 048
  10. AMITRIPTYLINE HCL [Concomitant]
     Indication: INSOMNIA
     Route: 048
  11. OYST-CAL-D [Concomitant]
     Indication: VITAMIN SUPPLEMENTATION
     Route: 048
  12. ASPIRIN [Concomitant]
     Indication: RETINAL DETACHMENT
     Route: 048
  13. ASPIRIN [Concomitant]
     Indication: EYE OPERATION
  14. FLUTICASONE PROPIONATE [Concomitant]
     Indication: SINUS OPERATION
     Route: 045
  15. ADVAIR DISKUS 500/50 [Concomitant]
     Indication: HYPERSENSITIVITY
     Route: 048

REACTIONS (4)
  - EYE DISORDER [None]
  - INJECTION SITE ERYTHEMA [None]
  - INJECTION SITE NODULE [None]
  - RASH [None]
